FAERS Safety Report 8071408-0 (Version None)
Quarter: 2012Q1

REPORT INFORMATION
  Report Type: 
  Country: None (occurrence: None)
  Receive Date: 20120125
  Receipt Date: 20111007
  Transmission Date: 20120608
  Serious: No
  Sender: FDA-Public Use
  Company Number: US-GENERAMEDIX INC.-SFGC20110002

PATIENT
  Age: 38 Year
  Sex: Female

DRUGS (1)
  1. SODIUM FERRIC GLUCONATE COMPLEX IN SUCROSE [Suspect]
     Route: 041
     Dates: start: 20111005, end: 20111007

REACTIONS (1)
  - INFUSION SITE EXTRAVASATION [None]
